FAERS Safety Report 9995414 (Version 1)
Quarter: 2014Q1

REPORT INFORMATION
  Report Type: Spontaneous
  Country: CL (occurrence: CL)
  Receive Date: 20140311
  Receipt Date: 20140311
  Transmission Date: 20141002
  Serious: Yes (Hospitalization)
  Sender: FDA-Public Use
  Company Number: CL-UCBSA-114311

PATIENT
  Age: 58 Year
  Sex: Female

DRUGS (8)
  1. CIMZIA [Suspect]
     Indication: RHEUMATOID ARTHRITIS
     Route: 058
     Dates: start: 20140127, end: 20140220
  2. FOLIC ACID [Concomitant]
  3. PREDNISONE [Concomitant]
  4. CELECOXIB [Concomitant]
  5. METHOTREXATE [Concomitant]
  6. AZULFIDINE [Concomitant]
  7. OMEPRAZOLE [Concomitant]
  8. CALCIUM-D [Concomitant]

REACTIONS (1)
  - Stevens-Johnson syndrome [Recovered/Resolved]
